FAERS Safety Report 12750086 (Version 1)
Quarter: 2016Q3

REPORT INFORMATION
  Report Type: Spontaneous
  Country: DE (occurrence: DE)
  Receive Date: 20160916
  Receipt Date: 20160916
  Transmission Date: 20161109
  Serious: Yes (Other)
  Sender: FDA-Public Use
  Company Number: DE-DRREDDYS-GER/GER/16/0083105

PATIENT
  Age: 18 Year
  Sex: Male
  Weight: 62 kg

DRUGS (1)
  1. DULOXETINE. [Suspect]
     Active Substance: DULOXETINE
     Indication: HEADACHE
     Route: 048
     Dates: start: 201606, end: 20160715

REACTIONS (3)
  - Diet refusal [Unknown]
  - Suicide attempt [Unknown]
  - Insomnia [Unknown]

NARRATIVE: CASE EVENT DATE: 201607
